FAERS Safety Report 9165742 (Version 1)
Quarter: 2013Q1

REPORT INFORMATION
  Report Type: Spontaneous
  Country: US (occurrence: US)
  Receive Date: 20130315
  Receipt Date: 20130315
  Transmission Date: 20140127
  Serious: No
  Sender: FDA-Public Use
  Company Number: US-TEVA-383013USA

PATIENT
  Age: 66 Year
  Sex: Female
  Weight: 62.65 kg

DRUGS (4)
  1. AZILECT [Suspect]
     Indication: PARKINSON^S DISEASE
     Dosage: .5 MILLIGRAM DAILY;
  2. LEVOTHYROXINE [Concomitant]
     Indication: HYPOTHYROIDISM
     Dosage: 150 MICROGRAM DAILY;
  3. MIDODRINE [Concomitant]
     Indication: BLOOD PRESSURE
     Dosage: 12.5 MILLIGRAM DAILY;
  4. FLUDROCORTISONE [Concomitant]
     Indication: BLOOD PRESSURE
     Dosage: 2 MILLIGRAM DAILY;

REACTIONS (1)
  - Insomnia [Recovered/Resolved]
